FAERS Safety Report 8518696-1 (Version None)
Quarter: 2012Q3

REPORT INFORMATION
  Report Type: 
  Country: None (occurrence: None)
  Receive Date: 20120718
  Receipt Date: 20110610
  Transmission Date: 20120928
  Serious: No
  Sender: FDA-Public Use
  Company Number: US-BRISTOL-MYERS SQUIBB COMPANY-15822042

PATIENT
  Age: 76 Year
  Sex: Male

DRUGS (3)
  1. SOTALOL HCL [Concomitant]
  2. ZETIA [Concomitant]
     Dosage: ZETIA2010
  3. COUMADIN [Suspect]
     Indication: ATRIAL FIBRILLATION
     Dates: start: 20070101

REACTIONS (2)
  - INTERNATIONAL NORMALISED RATIO INCREASED [None]
  - CONTUSION [None]
